FAERS Safety Report 7682092-X (Version None)
Quarter: 2011Q3

REPORT INFORMATION
  Report Type: 
  Country: None (occurrence: None)
  Receive Date: 20110810
  Receipt Date: 20110729
  Transmission Date: 20111222
  Serious: Yes (Hospitalization)
  Sender: FDA-Public Use
  Company Number: 1000022711

PATIENT
  Age: 58 Year
  Sex: Female

DRUGS (4)
  1. CITALOPRAM HYDROBROMIDE [Suspect]
     Indication: DEPRESSION
     Dosage: 60 MG (60 MG, 1 IN 1 D), ORAL
     Route: 048
  2. OMEPRAZOLE [Concomitant]
  3. PARACETAMOL (PARACETAMOL) (PARACETAMOL) [Concomitant]
  4. METOCLOPRAMIDE (METOCLOPRAMIDE) (METOCLOPRAMIDE) [Concomitant]

REACTIONS (2)
  - DUODENAL STENOSIS [None]
  - DUODENAL PERFORATION [None]
